FAERS Safety Report 5533207-0 (Version None)
Quarter: 2007Q4

REPORT INFORMATION
  Report Type: 
  Country: None (occurrence: None)
  Receive Date: 20071130
  Receipt Date: 20071130
  Transmission Date: 20080405
  Serious: Yes (Hospitalization)
  Sender: FDA-Public Use
  Company Number: None

PATIENT
  Sex: Female
  Weight: 54.5 kg

DRUGS (3)
  1. CARBOPLATIN [Suspect]
     Dosage: 738 MG
  2. TAXOTERE [Suspect]
     Dosage: 118 MG
  3. TAXOL [Suspect]
     Dosage: 94 MG

REACTIONS (14)
  - ANXIETY [None]
  - CLOSTRIDIAL INFECTION [None]
  - CONSTIPATION [None]
  - CYST [None]
  - DEHYDRATION [None]
  - HAEMATOTOXICITY [None]
  - HYPERCALCAEMIA [None]
  - HYPONATRAEMIA [None]
  - INSOMNIA [None]
  - METABOLIC DISORDER [None]
  - PHARYNGOLARYNGEAL PAIN [None]
  - PITTING OEDEMA [None]
  - POSTOPERATIVE ADHESION [None]
  - SMALL INTESTINAL OBSTRUCTION [None]
